FAERS Safety Report 25369761 (Version 1)
Quarter: 2025Q2

REPORT INFORMATION
  Report Type: Spontaneous
  Country: GR (occurrence: GR)
  Receive Date: 20250528
  Receipt Date: 20250528
  Transmission Date: 20250716
  Serious: Yes (Hospitalization, Other)
  Sender: MYLAN
  Company Number: GR-MEDO2008-002523

PATIENT
  Age: 81 Year

DRUGS (1)
  1. METFORMIN [Suspect]
     Active Substance: METFORMIN HYDROCHLORIDE
     Indication: Type 2 diabetes mellitus
     Dosage: 2000 MILLIGRAM, QD

REACTIONS (3)
  - Diabetes mellitus inadequate control [Unknown]
  - Jaundice cholestatic [Unknown]
  - Abdominal pain upper [Unknown]
